FAERS Safety Report 8354997-8 (Version None)
Quarter: 2012Q2

REPORT INFORMATION
  Report Type: 
  Country: None (occurrence: None)
  Receive Date: 20120511
  Receipt Date: 20120502
  Transmission Date: 20120825
  Serious: Yes (Other)
  Sender: FDA-Public Use
  Company Number: CA-JNJFOC-20110205899

PATIENT
  Sex: Female
  Weight: 102.06 kg

DRUGS (8)
  1. ALLOPURINOL [Concomitant]
  2. INDOMETHACIN [Concomitant]
  3. COLCHICINE [Concomitant]
     Route: 065
  4. CODEINE SULFATE [Concomitant]
     Route: 065
  5. STELARA [Suspect]
     Indication: PSORIASIS
     Route: 058
     Dates: start: 20090220, end: 20101209
  6. STELARA [Suspect]
     Route: 058
     Dates: start: 20120301
  7. TRAMADOL HYDROCHLORIDE [Suspect]
     Indication: PRODUCT USED FOR UNKNOWN INDICATION
     Route: 065
  8. AVALIDE [Concomitant]

REACTIONS (4)
  - DIARRHOEA [None]
  - CONSTIPATION [None]
  - ERUCTATION [None]
  - HEPATIC STEATOSIS [None]
